FAERS Safety Report 10228072 (Version 1)
Quarter: 2014Q2

REPORT INFORMATION
  Report Type: Spontaneous
  Country: TR (occurrence: TR)
  Receive Date: 20140610
  Receipt Date: 20140610
  Transmission Date: 20141212
  Serious: Yes (Other)
  Sender: FDA-Public Use
  Company Number: TR-ACTAVIS-2014-12481

PATIENT
  Sex: 0

DRUGS (1)
  1. DICLOFENAC (UNKNOWN) [Suspect]
     Indication: HEADACHE
     Dosage: 1 DF, SINGLE
     Route: 064

REACTIONS (4)
  - Ductus arteriosus premature closure [Unknown]
  - Right ventricular hypertrophy [Unknown]
  - Tricuspid valve incompetence [Unknown]
  - Foetal exposure during pregnancy [Unknown]
